FAERS Safety Report 14763888 (Version 1)
Quarter: 2018Q2

REPORT INFORMATION
  Report Type: Spontaneous
  Country: US (occurrence: US)
  Receive Date: 20180416
  Receipt Date: 20180416
  Transmission Date: 20180711
  Serious: No
  Sender: FDA-Public Use
  Company Number: US-SAREPTA THERAPEUTICS, INC-SRP-000025-2018

PATIENT
  Sex: Male
  Weight: 41.6 kg

DRUGS (1)
  1. EXONDYS 51 [Suspect]
     Active Substance: ETEPLIRSEN
     Indication: MUSCULAR DYSTROPHY
     Dosage: 1250 MG, WEEKLY
     Route: 042
     Dates: start: 20170809

REACTIONS (1)
  - Peripheral swelling [Unknown]
